FAERS Safety Report 19897029 (Version 1)
Quarter: 2021Q3

REPORT INFORMATION
  Report Type: Spontaneous
  Country: US (occurrence: US)
  Receive Date: 20210930
  Receipt Date: 20210930
  Transmission Date: 20211014
  Serious: No
  Sender: FDA-Public Use
  Company Number: US-AUROBINDO-AUR-APL-2020-046412

PATIENT
  Age: 72 Year
  Sex: Female

DRUGS (1)
  1. SUMATRIPTAN TABLETS 50MG [Suspect]
     Active Substance: SUMATRIPTAN
     Indication: MIGRAINE
     Dosage: 50 MILLIGRAM, AS NEEDED (ANOTHER TABLET 2 HOURS LATER IF NEEDED)
     Route: 048

REACTIONS (1)
  - Drug ineffective [Unknown]
